APPROVED DRUG PRODUCT: GEODON
Active Ingredient: ZIPRASIDONE HYDROCHLORIDE
Strength: EQ 10MG BASE/ML
Dosage Form/Route: SUSPENSION;ORAL
Application: N021483 | Product #001
Applicant: PFIZER INC
Approved: Mar 29, 2006 | RLD: No | RS: No | Type: DISCN